FAERS Safety Report 13944423 (Version 2)
Quarter: 2017Q3

REPORT INFORMATION
  Report Type: Report from Study
  Country: US (occurrence: US)
  Receive Date: 20170907
  Receipt Date: 20170912
  Transmission Date: 20171128
  Serious: Yes (Death, Hospitalization)
  Sender: FDA-Public Use
  Company Number: US-TAKEDA-2017MPI007369

PATIENT
  Age: 78 Year
  Sex: Male
  Weight: 69.84 kg

DRUGS (3)
  1. CYCLOPHOSPHAMIDE. [Concomitant]
     Active Substance: CYCLOPHOSPHAMIDE
     Indication: RENAL AMYLOIDOSIS
     Dosage: 400 MG, UNK
     Route: 048
     Dates: start: 20170613, end: 20170823
  2. IXAZOMIB [Suspect]
     Active Substance: IXAZOMIB
     Indication: RENAL AMYLOIDOSIS
     Dosage: 3 MG, UNK
     Route: 048
     Dates: start: 20170613, end: 20170823
  3. DEXAMETHASONE. [Concomitant]
     Active Substance: DEXAMETHASONE
     Indication: RENAL AMYLOIDOSIS
     Dosage: 12 MG, UNK
     Route: 048
     Dates: start: 20170613, end: 20170823

REACTIONS (2)
  - Death [Fatal]
  - Diarrhoea [Recovering/Resolving]

NARRATIVE: CASE EVENT DATE: 20170827
